FAERS Safety Report 10375311 (Version 1)
Quarter: 2014Q1

REPORT INFORMATION
  Report Type: Spontaneous
  Country: US (occurrence: None)
  Receive Date: 20140306
  Receipt Date: 20140306
  Transmission Date: 20141002
  Serious: Yes (Other)
  Sender: FDA-Public Use
  Company Number: 163-21880-13010876

PATIENT
  Age: 83 Year
  Sex: Male

DRUGS (9)
  1. REVLIMID [Suspect]
     Indication: PLASMA CELL MYELOMA
     Dosage: 5 MG, 21 IN 28 D, PO
     Route: 048
     Dates: start: 20120316
  2. AMLODIPINE BESYLATE (AMLODIPINE BESILATE) [Concomitant]
  3. ASPIRIN (ACETYLSALICYLIC ACID) [Concomitant]
  4. COUMADIN (WARFARIN SODIUM) [Concomitant]
  5. DEXAMETHASONE (DEXAMETHASONE) [Concomitant]
  6. EPOGEN (EPOETIN ALFA) [Concomitant]
  7. GLUCOSAMINE (GLUCOSAMINE) [Concomitant]
  8. LOSARTAN POTASSIUM (LOSARTAN POTASSIUM) [Concomitant]
  9. PANTOPRAZOLE SODIUM (PANTOPRAZOLE SODIUM) [Concomitant]

REACTIONS (2)
  - Haemoglobin decreased [None]
  - Platelet count decreased [None]
